FAERS Safety Report 4828179-8 (Version None)
Quarter: 2005Q4

REPORT INFORMATION
  Report Type: 
  Country: None (occurrence: None)
  Receive Date: 20051115
  Receipt Date: 20051108
  Transmission Date: 20060501
  Serious: Yes (Other)
  Sender: FDA-Public Use
  Company Number: US-GLAXOSMITHKLINE-A0581448A

PATIENT
  Age: 55 Year
  Sex: Male

DRUGS (3)
  1. AVODART [Suspect]
     Indication: BENIGN PROSTATIC HYPERPLASIA
     Dosage: .5MG PER DAY
     Route: 048
     Dates: start: 20050101
  2. TIAZAC [Concomitant]
  3. OXYCONTIN [Concomitant]

REACTIONS (4)
  - BLOOD URINE PRESENT [None]
  - RENAL DISORDER [None]
  - URINE OUTPUT DECREASED [None]
  - UROGRAM ABNORMAL [None]
